FAERS Safety Report 9759759 (Version 1)
Quarter: 2013Q4

REPORT INFORMATION
  Report Type: Spontaneous
  Country: US (occurrence: US)
  Receive Date: 20131216
  Receipt Date: 20131216
  Transmission Date: 20140711
  Serious: No
  Sender: FDA-Public Use
  Company Number: US-ABBVIE-13P-163-1095181-00

PATIENT
  Age: 66 Year
  Sex: Female
  Weight: 82.17 kg

DRUGS (20)
  1. TRILIPIX [Suspect]
     Indication: BLOOD CHOLESTEROL INCREASED
     Dates: start: 2012
  2. GABAPENTIN [Concomitant]
     Indication: NEUROPATHY PERIPHERAL
  3. BUSPAR [Concomitant]
     Indication: DEPRESSION
  4. JANUVIA [Concomitant]
     Indication: DIABETES MELLITUS
  5. LANTUS [Concomitant]
     Indication: DIABETES MELLITUS
  6. LEVOTHYROXINE [Concomitant]
     Indication: HYPOTHYROIDISM
  7. POTASSIUM CHLORIDE [Concomitant]
     Indication: HYPOKALAEMIA
  8. SERTRALINE [Concomitant]
     Indication: DEPRESSION
  9. TRAMADOL [Concomitant]
     Indication: PAIN
  10. ULTRACET [Concomitant]
     Indication: PAIN
  11. THEOPHYLLINE [Concomitant]
     Indication: CHRONIC OBSTRUCTIVE PULMONARY DISEASE
  12. PROVASTATIN [Concomitant]
     Indication: BLOOD CHOLESTEROL INCREASED
  13. TESSLON PEARLS [Concomitant]
     Indication: COUGH
  14. LASIX [Concomitant]
     Indication: FLUID RETENTION
  15. SINGULAIR [Concomitant]
     Indication: HYPERSENSITIVITY
  16. MECLAZINE [Concomitant]
     Indication: DIZZINESS
  17. PROMETHAZINE [Concomitant]
     Indication: HYPERSENSITIVITY
  18. FLONASE [Concomitant]
     Indication: HYPERSENSITIVITY
  19. COMBIVENT [Concomitant]
     Indication: CHRONIC OBSTRUCTIVE PULMONARY DISEASE
  20. FISH OIL [Concomitant]
     Indication: SUPPLEMENTATION THERAPY

REACTIONS (3)
  - Blister [Not Recovered/Not Resolved]
  - Pain in extremity [Not Recovered/Not Resolved]
  - Local swelling [Not Recovered/Not Resolved]
